FAERS Safety Report 8062787-9 (Version None)
Quarter: 2012Q1

REPORT INFORMATION
  Report Type: 
  Country: None (occurrence: None)
  Receive Date: 20120123
  Receipt Date: 20120110
  Transmission Date: 20120608
  Serious: Yes (Other)
  Sender: FDA-Public Use
  Company Number: FR-SANOFI-AVENTIS-2012SA003943

PATIENT
  Age: 60 Year
  Sex: Female

DRUGS (3)
  1. FEXOFENADINE [Suspect]
     Route: 048
  2. XYZAL [Concomitant]
     Route: 065
  3. CORTISONE ACETATE [Concomitant]
     Route: 065

REACTIONS (3)
  - PLATELET COUNT DECREASED [None]
  - TRANSAMINASES INCREASED [None]
  - AUTOIMMUNE HEPATITIS [None]
